FAERS Safety Report 10912367 (Version 3)
Quarter: 2015Q1

REPORT INFORMATION
  Report Type: Spontaneous
  Country: IT (occurrence: IT)
  Receive Date: 20150313
  Receipt Date: 20150327
  Transmission Date: 20150721
  Serious: Yes (Other)
  Sender: FDA-Public Use
  Company Number: IT-SA-2015SA028937

PATIENT
  Age: 78 Year
  Sex: Female

DRUGS (9)
  1. SOLDESAM [Suspect]
     Active Substance: DEXAMETHASONE
     Indication: PALLIATIVE CARE
     Dosage: 8 MG/2 ML
     Route: 030
     Dates: start: 20141201, end: 20141205
  2. LORTAAN [Concomitant]
     Active Substance: LOSARTAN POTASSIUM
     Route: 048
  3. METFORMIN [Suspect]
     Active Substance: METFORMIN HYDROCHLORIDE
     Indication: TYPE 2 DIABETES MELLITUS
     Route: 048
     Dates: start: 20140101, end: 20141205
  4. PANTOPRAZOLE [Concomitant]
     Active Substance: PANTOPRAZOLE SODIUM
     Dosage: 14MG GASTRO RESISTANT TABLETS
     Route: 048
  5. GLIMEPIRIDE. [Suspect]
     Active Substance: GLIMEPIRIDE
     Indication: TYPE 2 DIABETES MELLITUS
     Route: 048
     Dates: start: 20140101, end: 20141205
  6. MOVICOL [Concomitant]
     Active Substance: POLYETHYLENE GLYCOL 3350\POTASSIUM CHLORIDE\SODIUM BICARBONATE\SODIUM CHLORIDE
     Dosage: 13.8 G POWDER FOR ORAL?SOLUTION
     Route: 048
  7. DUROGESIC [Concomitant]
     Active Substance: FENTANYL
     Dosage: 25MG/TRANSDERMAL PATCHES
     Route: 062
  8. PLASIL [Concomitant]
     Active Substance: METOCLOPRAMIDE HYDROCHLORIDE
     Dosage: 10 MG TABLETS
     Route: 048
  9. SOTALOL. [Concomitant]
     Active Substance: SOTALOL
     Route: 048

REACTIONS (4)
  - Blood glucose increased [Recovering/Resolving]
  - Hyperglycaemia [Unknown]
  - Diabetic metabolic decompensation [Recovering/Resolving]
  - Somnolence [Recovering/Resolving]

NARRATIVE: CASE EVENT DATE: 20141205
